FAERS Safety Report 20391131 (Version 2)
Quarter: 2022Q1

REPORT INFORMATION
  Report Type: Spontaneous
  Country: CN (occurrence: CN)
  Receive Date: 20220128
  Receipt Date: 20220208
  Transmission Date: 20220424
  Serious: Yes (Hospitalization)
  Sender: FDA-Public Use
  Company Number: CN-SA-SAC20220124000322

PATIENT
  Age: 68 Year
  Sex: Female
  Weight: 60 kg

DRUGS (6)
  1. LANTUS SOLOSTAR [Suspect]
     Active Substance: INSULIN GLARGINE
     Indication: Diabetes mellitus
     Dosage: 16 IU, QD
     Dates: start: 2021
  2. LANTUS SOLOSTAR [Suspect]
     Active Substance: INSULIN GLARGINE
     Dosage: 12 IU, QD
     Dates: start: 2021
  3. DAPAGLIFLOZIN [Suspect]
     Active Substance: DAPAGLIFLOZIN
  4. GLUCOBAY [Concomitant]
     Active Substance: ACARBOSE
     Indication: Diabetes mellitus
     Dosage: 1 DF, TID
  5. PIOGLITAZONE [Concomitant]
     Active Substance: PIOGLITAZONE
     Indication: Diabetes mellitus
     Dosage: 1 DF, QD
  6. METFORMIN [Concomitant]
     Active Substance: METFORMIN HYDROCHLORIDE
     Dosage: 1 DF, QD

REACTIONS (4)
  - Gastric disorder [Unknown]
  - Blood glucose increased [Unknown]
  - Product storage error [Unknown]
  - Wrong technique in product usage process [Unknown]
